FAERS Safety Report 10409493 (Version 1)
Quarter: 2014Q2

REPORT INFORMATION
  Report Type: Spontaneous
  Country: US (occurrence: None)
  Receive Date: 20140604
  Receipt Date: 20140604
  Transmission Date: 20141212
  Serious: Yes (Other)
  Sender: FDA-Public Use
  Company Number: 163-POMAL-14023745

PATIENT
  Age: 60 Year
  Sex: Female

DRUGS (1)
  1. POMALYST (POMALIDOMDIE) (4 MILLIGRAM, CAPSULES) [Suspect]
     Indication: PLASMA CELL MYELOMA
     Route: 048
     Dates: start: 201401

REACTIONS (4)
  - Heart rate decreased [None]
  - Dizziness [None]
  - Muscle spasms [None]
  - Fatigue [None]
